FAERS Safety Report 26148703 (Version 1)
Quarter: 2025Q4

REPORT INFORMATION
  Report Type: Spontaneous
  Country: EU (occurrence: EU)
  Receive Date: 20251212
  Receipt Date: 20251212
  Transmission Date: 20260118
  Serious: Yes (Other)
  Sender: AUROBINDO
  Company Number: EU-BRISTOL-MYERS SQUIBB COMPANY-2025-159912

PATIENT
  Age: 79 Year

DRUGS (18)
  1. CARBOPLATIN [Suspect]
     Active Substance: CARBOPLATIN
     Indication: Non-small cell lung cancer
     Dosage: C1
     Route: 065
  2. CARBOPLATIN [Suspect]
     Active Substance: CARBOPLATIN
     Dosage: UNK
     Route: 065
  3. IPILIMUMAB [Suspect]
     Active Substance: IPILIMUMAB
     Indication: Non-small cell lung cancer
     Dosage: UNK
     Route: 065
  4. IPILIMUMAB [Suspect]
     Active Substance: IPILIMUMAB
     Dosage: MAINTENANCE THERAPY
     Route: 065
  5. IPILIMUMAB [Suspect]
     Active Substance: IPILIMUMAB
     Dosage: CYCLE 5
  6. IPILIMUMAB [Suspect]
     Active Substance: IPILIMUMAB
     Dosage: CYCLE 6
  7. IPILIMUMAB [Suspect]
     Active Substance: IPILIMUMAB
     Dosage: CYCLE 7
  8. IPILIMUMAB [Suspect]
     Active Substance: IPILIMUMAB
     Dosage: CYCLE 8
  9. IPILIMUMAB [Suspect]
     Active Substance: IPILIMUMAB
     Dosage: CYCLE 9
  10. NIVOLUMAB [Suspect]
     Active Substance: NIVOLUMAB
     Indication: Non-small cell lung cancer
     Dosage: UNK
     Route: 065
  11. NIVOLUMAB [Suspect]
     Active Substance: NIVOLUMAB
     Dosage: MAINTENANCE THERAPY
     Route: 065
  12. NIVOLUMAB [Suspect]
     Active Substance: NIVOLUMAB
     Dosage: CYCLE 5
     Route: 065
  13. NIVOLUMAB [Suspect]
     Active Substance: NIVOLUMAB
     Dosage: CYCLE 6
     Route: 065
  14. NIVOLUMAB [Suspect]
     Active Substance: NIVOLUMAB
     Dosage: CYCLE 7
     Route: 065
  15. NIVOLUMAB [Suspect]
     Active Substance: NIVOLUMAB
     Dosage: CYCLE 8
     Route: 065
  16. NIVOLUMAB [Suspect]
     Active Substance: NIVOLUMAB
     Dosage: CYCLE 9
     Route: 065
  17. PACLITAXEL [Suspect]
     Active Substance: PACLITAXEL
     Indication: Non-small cell lung cancer
     Dosage: UNK
     Route: 065
  18. BISOPROLOL [Concomitant]
     Active Substance: BISOPROLOL
     Indication: Product used for unknown indication
     Dosage: 2.5 MILLIGRAM, ONCE A DAY
     Route: 065

REACTIONS (3)
  - Diabetic ketoacidosis [Unknown]
  - Type 1 diabetes mellitus [Unknown]
  - Pancreatic failure [Unknown]

NARRATIVE: CASE EVENT DATE: 20250610
